FAERS Safety Report 4356520-1 (Version None)
Quarter: 2004Q2

REPORT INFORMATION
  Report Type: 
  Country: None (occurrence: None)
  Receive Date: 20040506
  Receipt Date: 20040426
  Transmission Date: 20050107
  Serious: Yes (Other)
  Sender: FDA-Public Use
  Company Number: 2004204545FI

PATIENT
  Sex: Female
  Weight: 60 kg

DRUGS (4)
  1. CELEBREX [Suspect]
     Indication: POST PROCEDURAL PAIN
     Dosage: 200 MG, QD OR BID, ORAL
     Route: 048
     Dates: start: 20040301, end: 20040309
  2. THYROXIN (LEVOTHYROXINE SODIUM) [Concomitant]
  3. VENTOLIN [Concomitant]
  4. DUACT (ACRIVASTINE) [Concomitant]

REACTIONS (4)
  - DYSPHAGIA [None]
  - OROPHARYNGEAL SWELLING [None]
  - PARAESTHESIA MUCOSAL [None]
  - SWOLLEN TONGUE [None]
